FAERS Safety Report 8427940-0 (Version None)
Quarter: 2012Q2

REPORT INFORMATION
  Report Type: 
  Country: None (occurrence: None)
  Receive Date: 20120611
  Receipt Date: 20120601
  Transmission Date: 20120825
  Serious: Yes (Hospitalization)
  Sender: FDA-Public Use
  Company Number: US-ASTRAZENECA-2011SE45451

PATIENT
  Age: 58 Year
  Sex: Male

DRUGS (2)
  1. RHINOCORT [Suspect]
     Route: 045
  2. NEXIUM [Suspect]
     Route: 048

REACTIONS (4)
  - GASTROINTESTINAL ULCER HAEMORRHAGE [None]
  - GASTROOESOPHAGEAL REFLUX DISEASE [None]
  - NASAL CONGESTION [None]
  - DRUG DOSE OMISSION [None]
